FAERS Safety Report 20154240 (Version 2)
Quarter: 2022Q2

REPORT INFORMATION
  Report Type: Spontaneous
  Country: US (occurrence: US)
  Receive Date: 20211207
  Receipt Date: 20220608
  Transmission Date: 20220721
  Serious: Yes (Other)
  Sender: FDA-Public Use
  Company Number: US-GILEAD-2021-0557456

PATIENT
  Age: 60 Year
  Sex: Male
  Weight: 75.737 kg

DRUGS (6)
  1. TRUVADA [Suspect]
     Active Substance: EMTRICITABINE\TENOFOVIR DISOPROXIL FUMARATE
     Indication: Product used for unknown indication
     Dosage: UNK
     Route: 048
     Dates: start: 201808, end: 201910
  2. DESCOVY [Concomitant]
     Active Substance: EMTRICITABINE\TENOFOVIR ALAFENAMIDE FUMARATE
  3. NICOTINE [Concomitant]
     Active Substance: NICOTINE
  4. BUPRENORPHINE [Concomitant]
     Active Substance: BUPRENORPHINE
  5. DIFLUNISAL [Concomitant]
     Active Substance: DIFLUNISAL
  6. BUPRENORFIN+NALOXONA [Concomitant]

REACTIONS (8)
  - Osteoporosis [Not Recovered/Not Resolved]
  - Pain [Not Recovered/Not Resolved]
  - Emotional distress [Not Recovered/Not Resolved]
  - Anxiety [Not Recovered/Not Resolved]
  - Anhedonia [Not Recovered/Not Resolved]
  - Pain in extremity [Not Recovered/Not Resolved]
  - Bone disorder [Unknown]
  - Skeletal injury [Unknown]

NARRATIVE: CASE EVENT DATE: 20191201
